FAERS Safety Report 17251645 (Version 1)
Quarter: 2019Q4

REPORT INFORMATION
  Report Type: Spontaneous
  Country: US (occurrence: US)
  Receive Date: 20191213
  Receipt Date: 20191213
  Transmission Date: 20200122
  Serious: Yes (Life-Threatening)
  Sender: FDA-Public Use
  Company Number: None

PATIENT
  Age: 76 Year
  Sex: Male

DRUGS (2)
  1. DEXTROSE/HEPARIN (HEPARIN NA 50UNT/ML/DEXTROSE 5% INJ) [Suspect]
     Active Substance: DEXTROSE\HEPARIN SODIUM
     Indication: PULMONARY EMBOLISM
  2. DEXTROSE/HEPARIN (HEPARIN NA 50UNT/ML/DEXTROSE 5% INJ) [Suspect]
     Active Substance: DEXTROSE\HEPARIN SODIUM
     Indication: DEEP VEIN THROMBOSIS
     Route: 042
     Dates: start: 20190727, end: 20190728

REACTIONS (1)
  - Thrombocytopenia [None]

NARRATIVE: CASE EVENT DATE: 20190728
